FAERS Safety Report 14627111 (Version 2)
Quarter: 2018Q1

REPORT INFORMATION
  Report Type: Report from Study
  Country: IT (occurrence: IT)
  Receive Date: 20180312
  Receipt Date: 20180327
  Transmission Date: 20180509
  Serious: Yes (Other)
  Sender: FDA-Public Use
  Company Number: IT-TEVA-2018-IT-866343

PATIENT
  Age: 78 Year
  Sex: Male

DRUGS (7)
  1. CYCLOPHOSPHAMIDE. [Suspect]
     Active Substance: CYCLOPHOSPHAMIDE
     Indication: WALDENSTROM^S MACROGLOBULINAEMIA
     Route: 065
     Dates: start: 201301, end: 201305
  2. RITUXIMAB. [Suspect]
     Active Substance: RITUXIMAB
     Dosage: ADMINISTERED ALONE.
     Route: 065
     Dates: start: 201305, end: 201408
  3. VINCRISTINE [Suspect]
     Active Substance: VINCRISTINE
     Indication: WALDENSTROM^S MACROGLOBULINAEMIA
     Route: 065
     Dates: start: 201301, end: 201305
  4. PREDNISONE. [Suspect]
     Active Substance: PREDNISONE
     Indication: WALDENSTROM^S MACROGLOBULINAEMIA
     Route: 065
     Dates: start: 201301, end: 201305
  5. RITUXIMAB. [Suspect]
     Active Substance: RITUXIMAB
     Indication: WALDENSTROM^S MACROGLOBULINAEMIA
     Dosage: ADMINISTERED ALONG WITH OTHER DRUGS (PART OF R-CHOP), AND THEN ADMINISTERED ALONE.
     Route: 065
     Dates: start: 201301, end: 201305
  6. DOXORUBICIN [Suspect]
     Active Substance: DOXORUBICIN
     Indication: WALDENSTROM^S MACROGLOBULINAEMIA
     Route: 065
     Dates: start: 201301, end: 201305
  7. LAMIVUDINE. [Concomitant]
     Active Substance: LAMIVUDINE
     Indication: HEPATITIS B REACTIVATION
     Dosage: 100MG DAILY, STARTED ONE-TWO WEEKS BEFORE CHEMOTHERAPY. PROPHYLAXIS CONTINUED DURING CHEMOTHERAPY...
     Route: 065
     Dates: end: 201602

REACTIONS (1)
  - Hepatitis B reactivation [Recovering/Resolving]

NARRATIVE: CASE EVENT DATE: 201602
